FAERS Safety Report 11058552 (Version 1)
Quarter: 2015Q2

REPORT INFORMATION
  Report Type: Report from Study
  Country: US (occurrence: None)
  Receive Date: 20150420
  Receipt Date: 20150420
  Transmission Date: 20150821
  Serious: No
  Sender: FDA-Public Use
  Company Number: AEGR001077

PATIENT
  Age: 67 Year
  Sex: Female
  Weight: 65.8 kg

DRUGS (5)
  1. FOSAMAX [Concomitant]
     Active Substance: ALENDRONATE SODIUM
  2. ASPIRIN (ACETYLSALICYLIC ACID) [Concomitant]
     Active Substance: ASPIRIN
  3. CALCIUM [Concomitant]
     Active Substance: CALCIUM
  4. VITAMIN D (COLECALCIFEROL) [Concomitant]
  5. JUXTAPID [Suspect]
     Active Substance: LOMITAPIDE MESYLATE
     Indication: TYPE IIA HYPERLIPIDAEMIA
     Route: 048
     Dates: start: 20141205, end: 20150309

REACTIONS (8)
  - Insomnia [None]
  - Weight decreased [None]
  - Decreased appetite [None]
  - Abdominal pain [None]
  - Diarrhoea [None]
  - Anxiety [None]
  - Acne [None]
  - Abdominal discomfort [None]

NARRATIVE: CASE EVENT DATE: 20141212
